FAERS Safety Report 9865586 (Version 2)
Quarter: 2014Q1

REPORT INFORMATION
  Report Type: Spontaneous
  Country: US (occurrence: US)
  Receive Date: 20140203
  Receipt Date: 20140203
  Transmission Date: 20141002
  Serious: No
  Sender: FDA-Public Use
  Company Number: US-ALLERGAN-1305613US

PATIENT
  Age: 66 Year
  Sex: Female

DRUGS (8)
  1. RESTASIS [Suspect]
     Indication: DRY EYE
     Dosage: 2 GTT, BID
     Route: 047
  2. RESTASIS [Suspect]
     Dosage: UNK
     Route: 047
     Dates: start: 20130320
  3. RESTASIS [Suspect]
     Dosage: UNK
     Route: 047
     Dates: start: 20130226
  4. RESTASIS [Suspect]
     Dosage: 2 GTT, BID
     Route: 047
     Dates: start: 201209, end: 20130414
  5. ANTIBIOTIC DROPS NOS [Concomitant]
     Indication: CATARACT OPERATION
     Dosage: UNK
     Route: 047
  6. REFRESH OPTIVE ADVANCED PRESERVATIVE FREE [Concomitant]
     Indication: DRY EYE
     Dosage: UNK
     Route: 047
  7. ALEVE [Concomitant]
     Indication: HEADACHE
     Dosage: UNK UNK, PRN
     Route: 048
  8. DAILY VITAMINS [Concomitant]
     Indication: SUPPLEMENTATION THERAPY
     Dosage: UNK UNK, BI-WEEKLY
     Route: 048

REACTIONS (6)
  - Abnormal sensation in eye [Recovered/Resolved]
  - Inappropriate schedule of drug administration [Unknown]
  - Scleral hyperaemia [Recovered/Resolved]
  - Lacrimation increased [Recovered/Resolved]
  - Vision blurred [Recovered/Resolved]
  - Ocular hyperaemia [Recovered/Resolved]
